FAERS Safety Report 9006068 (Version 2)
Quarter: 2013Q2

REPORT INFORMATION
  Report Type: Spontaneous
  Country: US (occurrence: US)
  Receive Date: 20130109
  Receipt Date: 20130416
  Transmission Date: 20140414
  Serious: Yes (Other)
  Sender: FDA-Public Use
  Company Number: PHEH2013US000576

PATIENT
  Age: 80 Year
  Sex: Male
  Weight: 60.78 kg

DRUGS (9)
  1. RECLAST [Suspect]
     Indication: OSTEOPOROSIS
     Dosage: UNK
     Route: 042
     Dates: start: 20121227
  2. SELEGILINE [Concomitant]
     Dosage: UNK
  3. OXYBUTYNINE [Concomitant]
     Dosage: 5 MG
  4. CARBIDOPA LEVODOPA [Concomitant]
     Dosage: 100 MG, BID
  5. CARBIDOPA LEVODOPA [Concomitant]
     Dosage: 100 MG, QD
  6. SAW PALMETTO [Concomitant]
     Indication: PROSTATE CANCER
     Dosage: 1 DAILY
  7. NORCO [Concomitant]
     Indication: COMPRESSION FRACTURE
     Dosage: 1 G, 6 HOURS
     Route: 048
  8. PYGEUM [Concomitant]
     Dosage: UNK
  9. TRAZODONE [Concomitant]
     Indication: INSOMNIA
     Dosage: UNK, BID
     Route: 048

REACTIONS (7)
  - Parkinson^s disease [Unknown]
  - Urinary incontinence [Not Recovered/Not Resolved]
  - Asthenia [Recovered/Resolved]
  - Fatigue [Recovered/Resolved]
  - Pyrexia [Recovered/Resolved]
  - Pain [Recovered/Resolved]
  - Back pain [Unknown]
